FAERS Safety Report 10643778 (Version 1)
Quarter: 2014Q4

REPORT INFORMATION
  Report Type: Spontaneous
  Country: US (occurrence: US)
  Receive Date: 20141210
  Receipt Date: 20141210
  Transmission Date: 20150529
  Serious: No
  Sender: FDA-Public Use
  Company Number: US-NOVEN-14US009987

PATIENT
  Sex: Male

DRUGS (4)
  1. NUCYNTA [Concomitant]
     Active Substance: TAPENTADOL HYDROCHLORIDE
     Indication: PRODUCT USED FOR UNKNOWN INDICATION
  2. OXYCODONE [Concomitant]
     Active Substance: OXYCODONE
     Indication: PRODUCT USED FOR UNKNOWN INDICATION
     Dosage: UNK
  3. FENTANYL. [Suspect]
     Active Substance: FENTANYL
     Indication: PAIN
     Dosage: 100 UG/HR, Q72HRS
     Route: 062
     Dates: start: 201407
  4. FENTANYL. [Suspect]
     Active Substance: FENTANYL
     Dosage: 25 UG/HR, Q72HRS
     Route: 062
     Dates: start: 201407, end: 201407

REACTIONS (2)
  - Product quality issue [Not Recovered/Not Resolved]
  - Drug ineffective [Not Recovered/Not Resolved]
